FAERS Safety Report 4605985-6 (Version None)
Quarter: 2005Q1

REPORT INFORMATION
  Report Type: 
  Country: None (occurrence: None)
  Receive Date: 20050311
  Receipt Date: 20050303
  Transmission Date: 20050727
  Serious: Yes (Other)
  Sender: FDA-Public Use
  Company Number: DK-GLAXOSMITHKLINE-B0374264A

PATIENT
  Sex: Female

DRUGS (3)
  1. LAMICTAL [Suspect]
  2. EFFEXOR [Concomitant]
     Indication: DEPRESSION
  3. DESORELLE [Concomitant]
     Indication: CONTRACEPTION

REACTIONS (1)
  - WITHDRAWAL BLEED [None]
